FAERS Safety Report 10417551 (Version 2)
Quarter: 2014Q3

REPORT INFORMATION
  Report Type: Spontaneous
  Country: FR (occurrence: FR)
  Receive Date: 20140829
  Receipt Date: 20140903
  Transmission Date: 20150326
  Serious: Yes (Hospitalization)
  Sender: FDA-Public Use
  Company Number: FR-BRISTOL-MYERS SQUIBB COMPANY-21322862

PATIENT
  Age: 90 Year
  Sex: Male

DRUGS (5)
  1. TRIATEC [Concomitant]
     Active Substance: RAMIPRIL
  2. COUMADINE [Suspect]
     Active Substance: WARFARIN SODIUM
     Indication: ATRIAL FIBRILLATION
     Dosage: 4MG/DAY:25JUL14
     Route: 048
     Dates: start: 20140725, end: 20140807
  3. TAHOR [Concomitant]
     Active Substance: ATORVASTATIN CALCIUM
  4. SEROPLEX [Concomitant]
     Active Substance: ESCITALOPRAM OXALATE
  5. LASILIX [Concomitant]
     Active Substance: FUROSEMIDE

REACTIONS (10)
  - Renal failure acute [Unknown]
  - Chest pain [Unknown]
  - Dyspnoea [Unknown]
  - Malaise [Unknown]
  - Haemoglobin decreased [Unknown]
  - Hypotension [Unknown]
  - Pain in extremity [Unknown]
  - Melaena [Recovered/Resolved]
  - General physical condition abnormal [Unknown]
  - Overdose [Unknown]

NARRATIVE: CASE EVENT DATE: 20140807
